FAERS Safety Report 6148032-X (Version None)
Quarter: 2009Q2

REPORT INFORMATION
  Report Type: 
  Country: None (occurrence: None)
  Receive Date: 20090408
  Receipt Date: 20090325
  Transmission Date: 20091009
  Serious: Yes (Death, Hospitalization)
  Sender: FDA-Public Use
  Company Number: JP-ROCHE-625833

PATIENT
  Age: 82 Year
  Sex: Male

DRUGS (16)
  1. CERCINE [Suspect]
     Indication: DRUG USE FOR UNKNOWN INDICATION
     Route: 030
  2. ARTIST [Suspect]
     Route: 048
     Dates: start: 20081225, end: 20090310
  3. DIGOXIN [Suspect]
     Indication: ATRIAL FIBRILLATION
     Route: 048
     Dates: start: 20081222, end: 20090310
  4. SEREVENT [Suspect]
     Indication: EMPHYSEMA
     Dosage: DRUG NAME: SEREVENT 50
     Route: 055
     Dates: start: 20081204, end: 20090310
  5. PAROXETINE HYDROCHLORIDE [Suspect]
     Indication: DEPRESSION
     Route: 048
     Dates: start: 20090117, end: 20090211
  6. PAROXETINE HYDROCHLORIDE [Suspect]
     Route: 048
     Dates: start: 20090212, end: 20090218
  7. PAROXETINE HYDROCHLORIDE [Suspect]
     Route: 048
     Dates: start: 20090219, end: 20090310
  8. DOGMATYL [Suspect]
     Indication: DEPRESSION
     Route: 048
     Dates: start: 20081224, end: 20090310
  9. FRUSEMIDE [Suspect]
     Route: 048
     Dates: end: 20090310
  10. UNIPHYL [Suspect]
     Indication: EMPHYSEMA
     Route: 048
     Dates: end: 20090310
  11. VASOLAN [Suspect]
     Indication: ARRHYTHMIA
     Route: 065
     Dates: end: 20090310
  12. SPIRIVA [Suspect]
     Indication: EMPHYSEMA
     Route: 055
     Dates: start: 20081204, end: 20090310
  13. KLARICID [Suspect]
     Indication: ATRIAL FIBRILLATION
     Route: 048
     Dates: start: 20081222, end: 20090310
  14. DANTROLENE SODIUM [Concomitant]
  15. SOLDEM [Concomitant]
     Dosage: SOLDEM 3 PG
     Dates: start: 20090118, end: 20090310
  16. WARFARIN SODIUM [Concomitant]
     Dates: start: 20081119, end: 20090310

REACTIONS (9)
  - CONVULSION [None]
  - DISSEMINATED INTRAVASCULAR COAGULATION [None]
  - HYPERTHERMIA [None]
  - MULTI-ORGAN FAILURE [None]
  - MUSCULOSKELETAL STIFFNESS [None]
  - NEUROLEPTIC MALIGNANT SYNDROME [None]
  - PYREXIA [None]
  - TACHYCARDIA [None]
  - TONIC CONVULSION [None]
